FAERS Safety Report 6723777-9 (Version None)
Quarter: 2010Q2

REPORT INFORMATION
  Report Type: 
  Country: None (occurrence: None)
  Receive Date: 20100513
  Receipt Date: 20100305
  Transmission Date: 20101027
  Serious: Yes (Hospitalization)
  Sender: FDA-Public Use
  Company Number: GB-ROCHE-676475

PATIENT
  Sex: Male
  Weight: 72 kg

DRUGS (6)
  1. BEVACIZUMAB [Suspect]
     Indication: COLON CANCER
     Dosage: FORM: INFUSION
     Route: 042
     Dates: start: 20091118
  2. CAPECITABINE [Suspect]
     Indication: COLON CANCER
     Route: 048
     Dates: start: 20091113
  3. AMLODIPINE BESYLATE [Concomitant]
     Indication: HYPERTENSION
     Route: 048
  4. BENDROFLUMETHIAZIDE [Concomitant]
     Indication: HYPERTENSION
     Route: 048
  5. PAROXETINE HCL [Concomitant]
     Indication: ANTIDEPRESSANT THERAPY
     Route: 048
  6. ZOPICLONE [Concomitant]
     Indication: SEDATION
     Route: 048

REACTIONS (1)
  - VOLVULUS [None]
